FAERS Safety Report 9879738 (Version 3)
Quarter: 2014Q2

REPORT INFORMATION
  Report Type: Spontaneous
  Country: NZ (occurrence: NZ)
  Receive Date: 20140206
  Receipt Date: 20140607
  Transmission Date: 20141212
  Serious: Yes (Disabling, Other)
  Sender: FDA-Public Use
  Company Number: PHHY2014NZ014779

PATIENT
  Age: 86 Year
  Sex: Female
  Weight: 75.2 kg

DRUGS (13)
  1. ACLASTA [Suspect]
     Indication: OSTEOPOROSIS
     Dosage: 5 MG, UNK
     Route: 042
     Dates: start: 20131024
  2. FLIXOTIDE [Concomitant]
     Dosage: 125 UG, BID
     Route: 055
     Dates: start: 20140107
  3. MULTIVIT//VITAMINS NOS [Concomitant]
     Dosage: 2 DF, QD
     Dates: start: 20140107
  4. TRIAZOLAM [Concomitant]
     Dosage: 1 DF, QD
     Dates: start: 20140107
  5. METOPROLOL SUCCINATE [Concomitant]
     Dosage: 1 DF, BID, CONTROLLED RELEASE
     Dates: start: 20140107
  6. CARDIZEM CD [Concomitant]
     Dosage: 1 DF, QD, CONTROLLED DELIVERY CAP
     Dates: start: 20140107
  7. OMEPRAZOLE [Concomitant]
     Dosage: 1 DF, QD
     Dates: start: 20140107
  8. ATORVASTATIN CALCIUM [Concomitant]
     Dosage: 1 DF, QD
     Dates: start: 20140107
  9. CAL-D [Concomitant]
     Dosage: 1.25 MG, ONCE A MONTH
     Dates: start: 20140107
  10. CARTIA//ACETYLSALICYLIC ACID [Concomitant]
     Dosage: 1 DF, QD
     Dates: start: 20140107
  11. ZOSTRIX HP [Concomitant]
     Dosage: 45 GM, QID
     Dates: start: 20140107
  12. PARACARE [Concomitant]
     Dosage: 2 DF, QID
     Dates: start: 20140107
  13. NITROLINGUAL [Concomitant]
     Dosage: 400 UG, 1 TO 2 PRN
     Route: 060
     Dates: start: 20130508

REACTIONS (7)
  - Optic neuropathy [Not Recovered/Not Resolved]
  - Blindness unilateral [Not Recovered/Not Resolved]
  - Type 2 diabetes mellitus [Unknown]
  - Uveitis [Not Recovered/Not Resolved]
  - Vision blurred [Unknown]
  - Eye irritation [Unknown]
  - Eye pruritus [Unknown]
